FAERS Safety Report 15000516 (Version 2)
Quarter: 2018Q4

REPORT INFORMATION
  Report Type: Spontaneous
  Country: US (occurrence: US)
  Receive Date: 20180612
  Receipt Date: 20181121
  Transmission Date: 20190204
  Serious: No
  Sender: FDA-Public Use
  Company Number: US-009507513-1805USA008508

PATIENT
  Age: 54 Year
  Sex: Female

DRUGS (3)
  1. KEYTRUDA [Suspect]
     Active Substance: PEMBROLIZUMAB
     Indication: GASTROINTESTINAL MELANOMA
     Dosage: UNK, NEOADJUVANT TREATMENT
  2. IPILIMUMAB [Concomitant]
     Active Substance: IPILIMUMAB
     Indication: GASTROINTESTINAL MELANOMA
     Dosage: UNK
  3. KEYTRUDA [Suspect]
     Active Substance: PEMBROLIZUMAB
     Dosage: UNK, ADJUVANT TREATMENT

REACTIONS (1)
  - Drug effect variable [Unknown]
